FAERS Safety Report 14165099 (Version 3)
Quarter: 2017Q4

REPORT INFORMATION
  Report Type: Spontaneous
  Country: AU (occurrence: AU)
  Receive Date: 20171107
  Receipt Date: 20171208
  Transmission Date: 20180321
  Serious: Yes (Other)
  Sender: FDA-Public Use
  Company Number: AU-ALLERGAN-1758496US

PATIENT
  Age: 60 Year
  Sex: Female

DRUGS (3)
  1. LUMIGAN [Suspect]
     Active Substance: BIMATOPROST
     Indication: GLAUCOMA
     Dosage: UNK
     Route: 047
     Dates: start: 20140301
  2. GANFORT PF [Suspect]
     Active Substance: BIMATOPROST\TIMOLOL
     Indication: GLAUCOMA
     Dosage: UNK UNK, QD
     Route: 061
     Dates: start: 201403, end: 201404
  3. GANFORT PF [Suspect]
     Active Substance: BIMATOPROST\TIMOLOL
     Dosage: UNK UNK, QD
     Route: 061
     Dates: start: 201403, end: 201409

REACTIONS (4)
  - Lagophthalmos [Recovering/Resolving]
  - Corneal neovascularisation [Recovering/Resolving]
  - Periorbital fat atrophy [Recovering/Resolving]
  - Trabeculectomy [Unknown]
